FAERS Safety Report 21582486 (Version 1)
Quarter: 2022Q4

REPORT INFORMATION
  Report Type: Spontaneous
  Country: GB (occurrence: US)
  Receive Date: 20221111
  Receipt Date: 20221111
  Transmission Date: 20230113
  Serious: No
  Sender: FDA-Public Use
  Company Number: GB-PFIZER INC-202201291584

PATIENT
  Age: 84 Year
  Sex: Female

DRUGS (1)
  1. PAXLOVID [Suspect]
     Active Substance: NIRMATRELVIR\RITONAVIR
     Indication: COVID-19 treatment
     Dosage: UNK
     Dates: start: 20221103

REACTIONS (4)
  - Taste disorder [Unknown]
  - Pyrexia [Recovering/Resolving]
  - Hyperhidrosis [Unknown]
  - Middle insomnia [Unknown]
